FAERS Safety Report 19040313 (Version 1)
Quarter: 2021Q1

REPORT INFORMATION
  Report Type: Report from Study
  Country: None (occurrence: US)
  Receive Date: 20210323
  Receipt Date: 20210323
  Transmission Date: 20210420
  Serious: Yes (Other)
  Sender: FDA-Public Use
  Company Number: US-ABBVIE-20K-163-3276339-00

PATIENT
  Sex: Male
  Weight: 118.04 kg

DRUGS (3)
  1. HUMIRA [Suspect]
     Active Substance: ADALIMUMAB
     Indication: PSORIASIS
     Dosage: CITRATE FREE
     Route: 058
  2. ZYRTEC [Concomitant]
     Active Substance: CETIRIZINE HYDROCHLORIDE
     Indication: HYPERSENSITIVITY
  3. MUCINEX [Concomitant]
     Active Substance: GUAIFENESIN
     Indication: HYPERSENSITIVITY

REACTIONS (6)
  - Skin cancer [Not Recovered/Not Resolved]
  - Tendon disorder [Recovering/Resolving]
  - Overweight [Recovering/Resolving]
  - Upper respiratory tract infection [Recovering/Resolving]
  - Precancerous condition [Unknown]
  - Stress fracture [Recovering/Resolving]

NARRATIVE: CASE EVENT DATE: 2020
